FAERS Safety Report 5480054-4 (Version None)
Quarter: 2007Q4

REPORT INFORMATION
  Report Type: 
  Country: None (occurrence: None)
  Receive Date: 20071008
  Receipt Date: 20070927
  Transmission Date: 20080405
  Serious: Yes (Other)
  Sender: FDA-Public Use
  Company Number: GB-PFIZER INC-2007081143

PATIENT
  Age: 32 Year
  Sex: Female
  Weight: 63 kg

DRUGS (6)
  1. VARENICLINE TABLETS [Suspect]
     Indication: SMOKING CESSATION THERAPY
     Route: 048
     Dates: start: 20070704, end: 20070716
  2. BECLOMETHASONE DIPROPIONATE [Concomitant]
     Indication: SEASONAL ALLERGY
     Route: 055
  3. VALPROATE SODIUM [Concomitant]
     Indication: BIPOLAR DISORDER
     Route: 048
  4. FLUOXETINE [Concomitant]
     Indication: AFFECT LABILITY
     Route: 048
  5. FLUOXETINE [Concomitant]
     Indication: PERSONALITY DISORDER
  6. ALL OTHER THERAPEUTIC PRODUCTS [Concomitant]
     Indication: SEASONAL ALLERGY

REACTIONS (7)
  - ABNORMAL DREAMS [None]
  - DIARRHOEA [None]
  - GINGIVAL PAIN [None]
  - MENTAL IMPAIRMENT [None]
  - PYREXIA [None]
  - SINUS CONGESTION [None]
  - TREMOR [None]
